FAERS Safety Report 5492421-3 (Version None)
Quarter: 2007Q4

REPORT INFORMATION
  Report Type: 
  Country: None (occurrence: None)
  Receive Date: 20071022
  Receipt Date: 20071016
  Transmission Date: 20080405
  Serious: Yes (Other)
  Sender: FDA-Public Use
  Company Number: US-ALLERGAN-0711404US

PATIENT
  Sex: Female

DRUGS (3)
  1. BOTOX [Suspect]
     Indication: VOCAL CORD DISORDER
     Dosage: 5 UNITS, SINGLE
     Route: 030
  2. SUCCINYLCHOLINE CHLORIDE [Concomitant]
  3. OXYGEN [Concomitant]
     Indication: POSTOPERATIVE CARE

REACTIONS (2)
  - STRIDOR [None]
  - VOCAL CORD DISORDER [None]
